FAERS Safety Report 15752970 (Version 1)
Quarter: 2018Q4

REPORT INFORMATION
  Report Type: Spontaneous
  Country: GB (occurrence: GB)
  Receive Date: 20181221
  Receipt Date: 20181221
  Transmission Date: 20190205
  Serious: Yes (Other)
  Sender: FDA-Public Use
  Company Number: GB-TEVA-2018-GB-989562

PATIENT
  Age: 44 Year
  Sex: Female

DRUGS (1)
  1. PHENYTOIN. [Suspect]
     Active Substance: PHENYTOIN
     Indication: EPILEPSY
     Route: 065

REACTIONS (4)
  - Toxicity to various agents [Unknown]
  - Asthenia [Unknown]
  - Anxiety [Unknown]
  - Paraesthesia [Unknown]

NARRATIVE: CASE EVENT DATE: 2006
